FAERS Safety Report 5706663-2 (Version None)
Quarter: 2008Q2

REPORT INFORMATION
  Report Type: 
  Country: None (occurrence: None)
  Receive Date: 20080414
  Receipt Date: 20080414
  Transmission Date: 20081010
  Serious: Yes (Other)
  Sender: FDA-Public Use
  Company Number: None

PATIENT
  Age: 8 Year
  Sex: Male
  Weight: 22.6799 kg

DRUGS (2)
  1. SINGULAIR [Suspect]
     Indication: ASTHMA
  2. SINGULAIR [Suspect]
     Indication: HYPERSENSITIVITY

REACTIONS (5)
  - ANGER [None]
  - ANXIETY [None]
  - DEPRESSION [None]
  - PERSONALITY CHANGE [None]
  - SUICIDAL IDEATION [None]
